FAERS Safety Report 25076342 (Version 2)
Quarter: 2025Q1

REPORT INFORMATION
  Report Type: Spontaneous
  Country: IR (occurrence: IR)
  Receive Date: 20250313
  Receipt Date: 20250317
  Transmission Date: 20250408
  Serious: Yes (Death, Other)
  Sender: PFIZER
  Company Number: IR-PFIZER INC-PV202500029443

PATIENT
  Age: 67 Year
  Sex: Female

DRUGS (2)
  1. VFEND [Suspect]
     Active Substance: VORICONAZOLE
     Indication: Pericarditis fungal
     Dosage: 400 MG, 2X/DAY (LOADING DOSE)
     Route: 042
     Dates: start: 2022
  2. VFEND [Suspect]
     Active Substance: VORICONAZOLE
     Dosage: 200 MG, 2X/DAY (MAINTENANCE DOSE)
     Route: 042
     Dates: start: 2022

REACTIONS (1)
  - Drug resistance [Fatal]

NARRATIVE: CASE EVENT DATE: 20220101
